FAERS Safety Report 8132455-3 (Version None)
Quarter: 2012Q1

REPORT INFORMATION
  Report Type: 
  Country: None (occurrence: None)
  Receive Date: 20120207
  Receipt Date: 20120126
  Transmission Date: 20120608
  Serious: Yes (Hospitalization, Other)
  Sender: FDA-Public Use
  Company Number: DSJ-2011-14655

PATIENT
  Age: 7 Decade
  Sex: Female

DRUGS (11)
  1. CLACIUM CARBONATE/VITAMIN D (COLECALCIFEROL, CALCIUM CARBONATE) (COLEC [Concomitant]
  2. SODIUM PICOSULPHATE/CASSIA SENNA/POLYGONUM PUNCTATUM/COLLINSONIA CANAD [Concomitant]
  3. AMLODIPINE BESYLATE AND OLMESARTAN MEDOXOMIL [Suspect]
     Indication: HYPERTENSION
     Dosage: 20/5 MG (1 IN 1 D), PER ORAL 40/5 MG (1 IN 1 D), PER ORAL
     Route: 048
     Dates: start: 20100101
  4. AMLODIPINE BESYLATE AND OLMESARTAN MEDOXOMIL [Suspect]
     Indication: HYPERTENSION
     Dosage: 20/5 MG (1 IN 1 D), PER ORAL 40/5 MG (1 IN 1 D), PER ORAL
     Route: 048
     Dates: start: 20090101, end: 20100101
  5. INDAPAMIDE [Concomitant]
  6. PANTOPRAZOLE (PANTOPRAZOLE) (PANTOPRAZOLE) [Concomitant]
  7. RIFAMYCIN (RIFAMYCIN ) (RIFAMYCIN) [Concomitant]
  8. FIBRINOLYSIN/DEOXYRIBONUCLEASE/CHLORAMPHENICOL [Concomitant]
  9. HUMAN INSULIN (INSULIN HUMAN) (INSULIN HUMAN) [Concomitant]
  10. BROMAZEPAM (BROMAZEPAM) (BROMAZEPAM) [Concomitant]
  11. DOMPERIDONE (DOMPERIDONE) (DOMPERIDONE) [Concomitant]

REACTIONS (10)
  - INTRAOCULAR PRESSURE INCREASED [None]
  - FALL [None]
  - PAIN [None]
  - OBESITY SURGERY [None]
  - ASTHENIA [None]
  - HEADACHE [None]
  - CHILLS [None]
  - RETINAL VEIN THROMBOSIS [None]
  - DRUG INEFFECTIVE [None]
  - VISUAL ACUITY REDUCED [None]
